FAERS Safety Report 5790298-X (Version None)
Quarter: 2008Q2

REPORT INFORMATION
  Report Type: 
  Country: None (occurrence: None)
  Receive Date: 20080618
  Receipt Date: 20080411
  Transmission Date: 20081010
  Serious: Yes (Other)
  Sender: FDA-Public Use
  Company Number: 200810597US

PATIENT
  Age: 57 Year
  Sex: Female
  Weight: 68.04 kg

DRUGS (26)
  1. LANTUS [Suspect]
     Indication: TYPE 1 DIABETES MELLITUS
     Dosage: 50 U/DAY
  2. PREDNISONE TAB [Concomitant]
  3. COZAAR [Concomitant]
  4. ZETIA [Concomitant]
  5. LEVOTHYROXINE SODIUM (LEVOTHYROID) [Concomitant]
  6. OMEPRAZOLE [Concomitant]
  7. ^REGAN^ [Concomitant]
  8. SPIRONOLACTONE (ALDACTONE /00006201/) [Concomitant]
  9. CLOPIDOGREL (PLAVIX /01220701/) [Concomitant]
  10. COREG [Concomitant]
  11. FUROSEMIDE (LASIX /00006201/) [Concomitant]
  12. FOSAMAX [Concomitant]
  13. ERGOCALCIFEROL (VIT D) [Concomitant]
  14. TAZAROTENE (TAZORAC) [Concomitant]
  15. CLOBETASOL PROPIONATE [Concomitant]
  16. NITROFURANTOIN [Concomitant]
  17. NICOTINIC ACID (SLO-NIACIN) [Concomitant]
  18. MAGNESIUM OXIDE (MAG-OX) [Concomitant]
  19. FERROUS GLUCONATE (FERGON) [Concomitant]
  20. CALCIUM CARBONATE (OYSTER SHELL CALCIUM /00108001/) [Concomitant]
  21. MULTI-VITAMIN [Concomitant]
  22. ASCORBIC ACID (VITAMIN C) [Concomitant]
  23. ASCORBIC ACID, TOCOPHEROL, RETINOL (OCUVITE /01053801/) [Concomitant]
  24. ASPIRIN [Concomitant]
  25. CLONIDINE [Concomitant]
  26. NOVOLOG [Concomitant]

REACTIONS (2)
  - BLOOD GLUCOSE INCREASED [None]
  - HYPOGLYCAEMIA [None]
